FAERS Safety Report 5512993-X (Version None)
Quarter: 2007Q4

REPORT INFORMATION
  Report Type: 
  Country: None (occurrence: None)
  Receive Date: 20071112
  Receipt Date: 20071105
  Transmission Date: 20080405
  Serious: Yes (Other)
  Sender: FDA-Public Use
  Company Number: CA-ASTRAZENECA-2007UW25907

PATIENT
  Age: 48 Year
  Sex: Male

DRUGS (5)
  1. NEXIUM [Suspect]
     Indication: GASTROOESOPHAGEAL REFLUX DISEASE
     Route: 048
     Dates: start: 20071101
  2. NEXIUM [Suspect]
     Route: 048
     Dates: start: 20071105
  3. MICARDIS [Concomitant]
  4. LIPITOR [Concomitant]
  5. ASAPHEN [Concomitant]

REACTIONS (1)
  - BLOOD PRESSURE DECREASED [None]
